FAERS Safety Report 6849030-0 (Version None)
Quarter: 2010Q3

REPORT INFORMATION
  Report Type: 
  Country: None (occurrence: None)
  Receive Date: 20100716
  Receipt Date: 20080119
  Transmission Date: 20110219
  Serious: No
  Sender: FDA-Public Use
  Company Number: US-PFIZER INC-2007082032

PATIENT

DRUGS (1)
  1. CHANTIX [Suspect]
     Dates: start: 20070801

REACTIONS (2)
  - PRURITUS [None]
  - RASH [None]
